FAERS Safety Report 8929343 (Version 1)
Quarter: 2012Q4

REPORT INFORMATION
  Report Type: Spontaneous
  Country: GB (occurrence: None)
  Receive Date: 20121119
  Receipt Date: 20121119
  Transmission Date: 20130627
  Serious: Yes (Hospitalization)
  Sender: FDA-Public Use
  Company Number: 2012-01662

PATIENT
  Age: 73 Year
  Sex: Female

DRUGS (2)
  1. SIMVASTATIN [Suspect]
     Indication: DRUG USE FOR UNKNOWN INDICATION
  2. FUSIDIC ACID (UNKNOWN) [Suspect]
     Dosage: 1500 mg (500 mg, 3 in 1 d), oral
     Route: 048

REACTIONS (3)
  - Rhabdomyolysis [None]
  - Drug interaction [None]
  - Urinary tract infection [None]
